FAERS Safety Report 25154934 (Version 1)
Quarter: 2025Q2

REPORT INFORMATION
  Report Type: Spontaneous
  Country: US (occurrence: None)
  Receive Date: 20250403
  Receipt Date: 20250403
  Transmission Date: 20250716
  Serious: No
  Sender: FDA-CTU
  Company Number: None

PATIENT
  Age: 5 Year
  Sex: Male
  Weight: 14.5 kg

DRUGS (11)
  1. CISPLATIN [Suspect]
     Active Substance: CISPLATIN
     Dates: end: 20250201
  2. CYCLOPHOSPHAMIDE [Suspect]
     Active Substance: CYCLOPHOSPHAMIDE
     Dates: end: 20241108
  3. ZINECARD [Suspect]
     Active Substance: DEXRAZOXANE HYDROCHLORIDE
     Dates: end: 20241218
  4. DOXORUBICIN HYDROCHLORIDE [Suspect]
     Active Substance: DOXORUBICIN HYDROCHLORIDE
     Dates: end: 20241218
  5. ETOPOSIDE [Suspect]
     Active Substance: ETOPOSIDE
     Dates: end: 20250201
  6. MESNA [Suspect]
     Active Substance: MESNA
     Dates: end: 20241218
  7. NEULASTA [Suspect]
     Active Substance: PEGFILGRASTIM
     Dates: end: 20250203
  8. TOPOTECAN [Suspect]
     Active Substance: TOPOTECAN HYDROCHLORIDE
     Dates: end: 20241108
  9. VINCRISTINE SULFATE [Suspect]
     Active Substance: VINCRISTINE SULFATE
     Dates: end: 20241217
  10. DINUTUXIMAB [Suspect]
     Active Substance: DINUTUXIMAB
  11. DINUTUXIMAB [Suspect]
     Active Substance: DINUTUXIMAB

REACTIONS (1)
  - Deafness [None]

NARRATIVE: CASE EVENT DATE: 20250227
